FAERS Safety Report 5690156-5 (Version None)
Quarter: 2008Q2

REPORT INFORMATION
  Report Type: 
  Country: None (occurrence: None)
  Receive Date: 20080401
  Receipt Date: 20080108
  Transmission Date: 20081010
  Serious: Yes (Death)
  Sender: FDA-Public Use
  Company Number: FR-NOVOPROD-270832

PATIENT
  Sex: Female
  Weight: 89 kg

DRUGS (5)
  1. VAGIFEM [Suspect]
     Indication: ATROPHIC VULVOVAGINITIS
     Dosage: 10 UG, BIW
     Route: 067
     Dates: start: 20070206, end: 20071101
  2. EFFEXOR [Concomitant]
     Indication: DEPRESSION
     Dates: start: 20061001
  3. DELURSAN [Concomitant]
     Dates: start: 19990101
  4. PREVISCAN                          /00261401/ [Concomitant]
     Indication: VENOUS STASIS
     Dates: start: 20050101
  5. KERLONE                            /00706301/ [Concomitant]
     Indication: ARRHYTHMIA
     Dates: start: 20050101

REACTIONS (1)
  - METASTASES TO CENTRAL NERVOUS SYSTEM [None]
